FAERS Safety Report 6264601-0 (Version None)
Quarter: 2009Q3

REPORT INFORMATION
  Report Type: 
  Country: None (occurrence: None)
  Receive Date: 20090710
  Receipt Date: 20090702
  Transmission Date: 20100115
  Serious: Yes (Hospitalization, Other)
  Sender: FDA-Public Use
  Company Number: PHHY2009JP17423

PATIENT
  Sex: Male
  Weight: 61 kg

DRUGS (32)
  1. NEORAL [Suspect]
     Indication: PSORIASIS
     Dosage: 150 MG DAILY
     Route: 048
     Dates: start: 20080119, end: 20080214
  2. NEORAL [Suspect]
     Dosage: 100 MG DAILY
     Route: 048
     Dates: start: 20080215, end: 20080228
  3. NEORAL [Suspect]
     Dosage: 75 MG DAILY
     Route: 048
     Dates: start: 20080229, end: 20080330
  4. NEORAL [Suspect]
     Dosage: 50 MG DAILY
     Route: 048
     Dates: start: 20080331, end: 20080918
  5. NEORAL [Suspect]
     Dosage: 75 MG DAILY
     Route: 048
     Dates: start: 20080919, end: 20090201
  6. NEORAL [Suspect]
     Dosage: 75 MG DAILY
     Route: 048
     Dates: start: 20090201, end: 20090312
  7. NEORAL [Suspect]
     Dosage: 75 MG DAILY
     Route: 048
     Dates: start: 20090526
  8. ALLELOCK [Concomitant]
     Indication: PSORIASIS
     Dosage: 10 MG DAILY
     Route: 048
     Dates: start: 20080119, end: 20080131
  9. ALLELOCK [Concomitant]
     Dosage: 10 MG DAILY
     Route: 048
     Dates: start: 20080215, end: 20090317
  10. ALLELOCK [Concomitant]
     Dosage: 10 MG DAILY
     Route: 048
     Dates: start: 20090325
  11. DIOVAN [Concomitant]
     Indication: HYPERTENSION
     Dosage: 80 MG, UNK
     Route: 048
     Dates: start: 20080118
  12. OLMETEC [Concomitant]
     Indication: HYPERTENSION
     Dosage: 40 MG
     Route: 048
     Dates: start: 20080215
  13. OLMETEC [Concomitant]
     Dosage: 40 MG
     Route: 048
  14. CONIEL [Concomitant]
     Indication: HYPERTENSION
     Dosage: 4 MG
     Route: 048
     Dates: start: 20080229
  15. AMLODIPINE [Concomitant]
     Indication: HYPERTENSION
     Dosage: 5 MG
     Route: 048
     Dates: start: 20080324
  16. CARDENALIN [Concomitant]
     Indication: HYPERTENSION
     Dosage: 0.5 MG
     Route: 048
     Dates: start: 20080421, end: 20080718
  17. RIZE [Concomitant]
     Indication: HYPERTENSION
     Dosage: 15 MG
     Route: 048
     Dates: start: 20090119
  18. RIZE [Concomitant]
     Dosage: 5 MG
     Route: 048
  19. RIZE [Concomitant]
     Dosage: 15 MG
     Route: 048
  20. ADALAT [Concomitant]
     Indication: HYPERTENSION
     Dosage: 10 MG
     Route: 048
     Dates: start: 20090321, end: 20090321
  21. MECOBALAMIN [Concomitant]
     Dosage: 1500 MG
     Route: 048
     Dates: start: 20090304, end: 20090512
  22. ADETPHOS [Concomitant]
     Dosage: 300 MG
     Route: 048
     Dates: start: 20090304, end: 20090512
  23. MUCOSTA [Concomitant]
     Dosage: 3 DF
     Route: 048
     Dates: start: 20090304, end: 20090512
  24. GASPORT [Concomitant]
     Dosage: 40 MG
     Route: 048
     Dates: start: 20090304
  25. CARNACULIN [Concomitant]
     Dosage: 75 MG
     Route: 048
     Dates: start: 20090304
  26. HYALEIN [Concomitant]
     Dosage: UNK
     Route: 047
     Dates: start: 20090304
  27. PROPADERM [Concomitant]
     Indication: PSORIASIS
     Dosage: UNK
     Dates: start: 20080118, end: 20081201
  28. JUVELA [Concomitant]
     Indication: PSORIASIS
     Dosage: UNK
     Dates: start: 20080118, end: 20081201
  29. ANTEBATE [Concomitant]
     Indication: PSORIASIS
     Dosage: UNK
     Dates: start: 20080118, end: 20081201
  30. LOCOID [Concomitant]
     Indication: PSORIASIS
     Dosage: UNK
     Dates: start: 20080118, end: 20081201
  31. NIZORAL [Concomitant]
     Indication: PSORIASIS
     Dosage: UNK
     Dates: start: 20080118, end: 20081201
  32. OXAROL [Concomitant]
     Indication: PSORIASIS
     Dosage: UNK
     Dates: start: 20080118, end: 20081201

REACTIONS (3)
  - FACIAL PALSY [None]
  - NASOPHARYNGITIS [None]
  - VIRAL INFECTION [None]
